FAERS Safety Report 18927008 (Version 1)
Quarter: 2021Q1

REPORT INFORMATION
  Report Type: Spontaneous
  Country: US (occurrence: US)
  Receive Date: 20210222
  Receipt Date: 20210222
  Transmission Date: 20210420
  Serious: Yes (Other)
  Sender: FDA-Public Use
  Company Number: None

PATIENT
  Age: 24 Year
  Sex: Female
  Weight: 102.6 kg

DRUGS (2)
  1. TSAL SHAMPOO [Concomitant]
  2. CLOBETASOL PROPIONATE SHAMPOO 0.05% [Suspect]
     Active Substance: CLOBETASOL PROPIONATE
     Indication: PSORIASIS
     Dosage: ?          QUANTITY:118 OUNCE(S);OTHER FREQUENCY:ONCE A WEEK;OTHER ROUTE:SCALP?
     Dates: start: 20210222, end: 20210222

REACTIONS (3)
  - Headache [None]
  - Dizziness [None]
  - Fatigue [None]

NARRATIVE: CASE EVENT DATE: 20210222
